FAERS Safety Report 4416253-X (Version None)
Quarter: 2004Q3

REPORT INFORMATION
  Report Type: 
  Country: None (occurrence: None)
  Receive Date: 20040804
  Receipt Date: 20040804
  Transmission Date: 20050211
  Serious: Yes (Life-Threatening, Hospitalization)
  Sender: FDA-Public Use
  Company Number: None

PATIENT
  Age: 77 Year
  Sex: Female
  Weight: 51.2565 kg

DRUGS (2)
  1. ABELCET [Suspect]
     Indication: URINARY TRACT INFECTION
     Dosage: 150 MG IV QD X1 DOSE
     Route: 042
     Dates: start: 20030707
  2. CEFEPIME [Concomitant]

REACTIONS (5)
  - CHILLS [None]
  - HEART RATE INCREASED [None]
  - HYPOTENSION [None]
  - RASH [None]
  - WHEEZING [None]
